FAERS Safety Report 6431535-8 (Version None)
Quarter: 2009Q4

REPORT INFORMATION
  Report Type: 
  Country: None (occurrence: None)
  Receive Date: 20091103
  Receipt Date: 20091019
  Transmission Date: 20100525
  Serious: Yes (Hospitalization)
  Sender: FDA-Public Use
  Company Number: 02100-JPN-06-0420

PATIENT
  Age: 57 Year
  Sex: Male
  Weight: 76 kg

DRUGS (6)
  1. PLETAL [Suspect]
     Indication: CEREBRAL INFARCTION
     Dosage: 81 MG,QD; ORAL
     Route: 048
     Dates: start: 20040629, end: 20060904
  2. BLOPRESS (CANDESARTAN CILEXETIL) TABLET [Concomitant]
  3. LASIX [Concomitant]
  4. LIPITOR [Concomitant]
  5. CALBLOCK (ZALNIDIPINE) TABLET [Concomitant]
  6. DOXAZOSIN MESYLATE [Concomitant]

REACTIONS (1)
  - DIVERTICULUM INTESTINAL HAEMORRHAGIC [None]
